FAERS Safety Report 17761505 (Version 1)
Quarter: 2020Q2

REPORT INFORMATION
  Report Type: Spontaneous
  Country: FR (occurrence: FR)
  Receive Date: 20200508
  Receipt Date: 20200508
  Transmission Date: 20200714
  Serious: Yes (Other)
  Sender: FDA-Public Use
  Company Number: FR-MYLANLABS-2020M1045102

PATIENT
  Age: 25 Year
  Sex: Male

DRUGS (2)
  1. LEVOFLOXACIN. [Suspect]
     Active Substance: LEVOFLOXACIN
     Indication: MENINGITIS
  2. LEVOFLOXACIN. [Suspect]
     Active Substance: LEVOFLOXACIN
     Indication: CEREBROSPINAL FLUID LEAKAGE
     Dosage: UNK
     Route: 065

REACTIONS (9)
  - Neurotoxicity [Unknown]
  - Hypercapnia [Recovering/Resolving]
  - Off label use [Unknown]
  - Product use in unapproved indication [Unknown]
  - Muscle contractions involuntary [Recovering/Resolving]
  - Cranial nerve injury [Unknown]
  - Muscle spasms [Recovering/Resolving]
  - Dysphagia [Recovering/Resolving]
  - Toxicity to various agents [Unknown]
